FAERS Safety Report 8822636 (Version 1)
Quarter: 2012Q4

REPORT INFORMATION
  Report Type: 
  Country: US (occurrence: US)
  Receive Date: 20121003
  Receipt Date: 20121003
  Transmission Date: 20130627
  Serious: Yes (Other)
  Sender: FDA-Public Use
  Company Number: US-PFIZER INC-2012243584

PATIENT
  Age: 67 Year
  Sex: Male
  Weight: 105.67 kg

DRUGS (10)
  1. TIKOSYN [Suspect]
     Indication: ATRIAL FIBRILLATION
     Dosage: 500 ug, 2x/day
     Route: 048
     Dates: start: 201003, end: 2010
  2. TIKOSYN [Suspect]
     Dosage: UNK
     Route: 048
     Dates: start: 201010, end: 201102
  3. TESTOSTERONE [Concomitant]
     Dosage: UNK
  4. COLACE [Concomitant]
     Dosage: UNK
  5. VASOTEC [Concomitant]
     Dosage: 5 mg, 1x/day
  6. TOPROL XL [Concomitant]
     Dosage: 50 mg, 2x/day
  7. LASIX [Concomitant]
     Dosage: 40 mg, 1x/day
  8. PEPCID [Concomitant]
     Dosage: 40 mg, 1x/day
  9. COUMADINE [Concomitant]
     Dosage: 10 mg, 3x/week and 12.5mg, 4x/week alternatively
  10. PROSCAR [Concomitant]
     Dosage: 5 mg, UNK

REACTIONS (2)
  - Arrhythmia [Unknown]
  - Cardiac flutter [Unknown]
